FAERS Safety Report 10684985 (Version 2)
Quarter: 2014Q4

REPORT INFORMATION
  Report Type: Spontaneous
  Country: US (occurrence: US)
  Receive Date: 20141231
  Receipt Date: 20141231
  Transmission Date: 20150529
  Serious: Yes (Other)
  Sender: FDA-Public Use
  Company Number: PHEH2004US14110

PATIENT
  Age: 41 Year
  Sex: Female

DRUGS (1)
  1. TOBRAMYCIN. [Suspect]
     Active Substance: TOBRAMYCIN
     Indication: BRONCHIECTASIS
     Dosage: 300 MG, BID
     Route: 055
     Dates: start: 19990512, end: 19990605

REACTIONS (7)
  - Ataxia [Recovering/Resolving]
  - Dizziness [Recovering/Resolving]
  - Deafness [Recovering/Resolving]
  - Ototoxicity [Recovering/Resolving]
  - Nystagmus [Recovering/Resolving]
  - Oscillopsia [Recovering/Resolving]
  - Disability [Unknown]

NARRATIVE: CASE EVENT DATE: 1999
